FAERS Safety Report 17354341 (Version 1)
Quarter: 2020Q1

REPORT INFORMATION
  Report Type: Spontaneous
  Country: AR (occurrence: AR)
  Receive Date: 20200131
  Receipt Date: 20200131
  Transmission Date: 20200409
  Serious: Yes (Hospitalization, Other)
  Sender: FDA-Public Use
  Company Number: AR-QUAGEN PHARMA LLC-2020QUALIT00014

PATIENT
  Age: 50 Year
  Sex: Male

DRUGS (4)
  1. RISPERIDONE. [Suspect]
     Active Substance: RISPERIDONE
  2. PROMETHAZINE HYDROCHLORIDE TABLETS, 25 MG [Suspect]
     Active Substance: PROMETHAZINE HYDROCHLORIDE
  3. CLONAZEPAM. [Concomitant]
     Active Substance: CLONAZEPAM
  4. MAGNESIUM VALPROATE [Concomitant]
     Active Substance: VALPROATE MAGNESIUM

REACTIONS (3)
  - Rhabdomyolysis [Unknown]
  - Product use in unapproved indication [Unknown]
  - Hypokalaemia [Unknown]

NARRATIVE: CASE EVENT DATE: 2012
